FAERS Safety Report 6411204-0 (Version None)
Quarter: 2009Q4

REPORT INFORMATION
  Report Type: 
  Country: None (occurrence: None)
  Receive Date: 20091019
  Receipt Date: 20091013
  Transmission Date: 20100525
  Serious: Yes (Life-Threatening, Hospitalization)
  Sender: FDA-Public Use
  Company Number: 2009-04299

PATIENT
  Age: 63 Year
  Sex: Male

DRUGS (7)
  1. VELCADE [Suspect]
     Indication: MULTIPLE MYELOMA
     Dosage: 2.6 MG, INTRAVENOUS
     Dates: start: 20081013, end: 20090916
  2. BONDRONAT (IBANDRONIC ACID) [Concomitant]
  3. METOPROLOL TARTRATE [Concomitant]
  4. TORSEMIDE [Concomitant]
  5. AMLODIPINE BESYLATE [Concomitant]
  6. OMEPRAZOLE [Concomitant]
  7. ALLOPURINOL [Concomitant]

REACTIONS (3)
  - ATRIOVENTRICULAR BLOCK COMPLETE [None]
  - SYNCOPE [None]
  - TRIFASCICULAR BLOCK [None]
